FAERS Safety Report 11126722 (Version 3)
Quarter: 2015Q3

REPORT INFORMATION
  Report Type: Spontaneous
  Country: US (occurrence: US)
  Receive Date: 20150520
  Receipt Date: 20150707
  Transmission Date: 20151125
  Serious: Yes (Hospitalization, Disabling, Other)
  Sender: FDA-Public Use
  Company Number: US-009507513-1204USA00506

PATIENT
  Sex: Female
  Weight: 87.3 kg

DRUGS (3)
  1. ALENDRONATE SODIUM. [Suspect]
     Active Substance: ALENDRONATE SODIUM
     Indication: OSTEOPOROSIS
     Dosage: 70 MG, QW
     Dates: start: 20080601
  2. FOSAMAX [Suspect]
     Active Substance: ALENDRONATE SODIUM
     Indication: OSTEOPOROSIS
     Dosage: 70 MG, QW
     Route: 048
     Dates: start: 2000, end: 2011
  3. FOSAMAX [Suspect]
     Active Substance: ALENDRONATE SODIUM
     Indication: OSTEOPOROSIS
     Dosage: UNK
     Route: 048

REACTIONS (23)
  - Bone disorder [Not Recovered/Not Resolved]
  - Low turnover osteopathy [Not Recovered/Not Resolved]
  - Candida infection [Unknown]
  - Hot flush [Unknown]
  - Osteoarthritis [Unknown]
  - Spinal osteoarthritis [Unknown]
  - Impaired healing [Unknown]
  - Osteopenia [Unknown]
  - Femur fracture [Not Recovered/Not Resolved]
  - Blood cholesterol increased [Unknown]
  - Osteoarthritis [Unknown]
  - Osteoporosis [Not Recovered/Not Resolved]
  - Hypertension [Unknown]
  - Candida infection [Unknown]
  - Supraventricular tachycardia [Unknown]
  - Skin lesion [Unknown]
  - Exostosis [Unknown]
  - Breast cancer [Unknown]
  - Phlebolith [Unknown]
  - Femur fracture [Not Recovered/Not Resolved]
  - Intramedullary rod insertion [Unknown]
  - Bladder repair [Unknown]
  - Benign neoplasm of skin [Unknown]

NARRATIVE: CASE EVENT DATE: 200408
